FAERS Safety Report 21010716 (Version 7)
Quarter: 2023Q2

REPORT INFORMATION
  Report Type: Spontaneous
  Country: US (occurrence: US)
  Receive Date: 20220627
  Receipt Date: 20230606
  Transmission Date: 20230721
  Serious: No
  Sender: FDA-Public Use
  Company Number: US-KARYOPHARM-2022KPT000664

PATIENT

DRUGS (6)
  1. XPOVIO [Suspect]
     Active Substance: SELINEXOR
     Indication: Plasma cell myeloma
     Dosage: 80 MG, WEEKLY
     Route: 048
     Dates: start: 20220607, end: 202212
  2. XPOVIO [Suspect]
     Active Substance: SELINEXOR
     Dosage: 80 MG, WEEKLY
     Route: 048
     Dates: end: 20230516
  3. DARATUMUMAB [Concomitant]
     Active Substance: DARATUMUMAB
     Dosage: UNK
     Route: 058
  4. DEXAMETHASONE [Concomitant]
     Active Substance: DEXAMETHASONE
  5. ONDANSETRON [Concomitant]
     Active Substance: ONDANSETRON
  6. LASIX [Concomitant]
     Active Substance: FUROSEMIDE
     Indication: Fluid retention

REACTIONS (22)
  - Taste disorder [Not Recovered/Not Resolved]
  - White blood cell count decreased [Recovering/Resolving]
  - Depression [Recovered/Resolved]
  - Musculoskeletal chest pain [Unknown]
  - Hepatic enzyme abnormal [Unknown]
  - Red blood cell count decreased [Unknown]
  - Anxiety [Unknown]
  - Hypotension [Unknown]
  - Dizziness postural [Unknown]
  - Fall [Unknown]
  - Glycosylated haemoglobin increased [Unknown]
  - Blood magnesium decreased [Unknown]
  - Plasma cell myeloma [Unknown]
  - Weight decreased [Recovering/Resolving]
  - Asthenia [Unknown]
  - Haemoglobin decreased [Unknown]
  - Platelet count decreased [Not Recovered/Not Resolved]
  - Diarrhoea [Unknown]
  - Nausea [Not Recovered/Not Resolved]
  - Vomiting [Unknown]
  - Fatigue [Not Recovered/Not Resolved]
  - Product dose omission issue [Unknown]

NARRATIVE: CASE EVENT DATE: 20220101
